FAERS Safety Report 10219312 (Version 1)
Quarter: 2014Q2

REPORT INFORMATION
  Report Type: Spontaneous
  Country: DE (occurrence: DE)
  Receive Date: 20140605
  Receipt Date: 20140605
  Transmission Date: 20141212
  Serious: Yes (Other)
  Sender: FDA-Public Use
  Company Number: DE-ELI_LILLY_AND_COMPANY-DE201405010398

PATIENT
  Age: 38 Year
  Sex: Female

DRUGS (2)
  1. GEMCITABINE HYDROCHLORIDE [Suspect]
     Indication: ADENOCARCINOMA
     Dosage: 1000 MG/M2, OTHER
     Route: 065
  2. CISPLATIN [Suspect]
     Indication: ADENOCARCINOMA
     Dosage: 50 MG/M2, OTHER
     Route: 065

REACTIONS (5)
  - Maternal exposure during pregnancy [Unknown]
  - Neoplasm progression [Unknown]
  - Leukopenia [Unknown]
  - Haematotoxicity [Unknown]
  - Pregnancy with advanced maternal age [Unknown]
